FAERS Safety Report 21586911 (Version 1)
Quarter: 2022Q4

REPORT INFORMATION
  Report Type: Report from Study
  Country: CO (occurrence: CO)
  Receive Date: 20221113
  Receipt Date: 20221113
  Transmission Date: 20230112
  Serious: Yes (Hospitalization)
  Sender: FDA-Public Use
  Company Number: CO-JNJFOC-20221114547

PATIENT
  Age: 76 Year
  Sex: Male
  Weight: 60 kg

DRUGS (1)
  1. APALUTAMIDE [Suspect]
     Active Substance: APALUTAMIDE
     Indication: Hormone-refractory prostate cancer
     Route: 048
     Dates: start: 20210908

REACTIONS (1)
  - Pharyngeal injury [Recovering/Resolving]

NARRATIVE: CASE EVENT DATE: 20221016
